FAERS Safety Report 16801333 (Version 2)
Quarter: 2019Q3

REPORT INFORMATION
  Report Type: Report from Study
  Country: US (occurrence: US)
  Receive Date: 20190912
  Receipt Date: 20190929
  Transmission Date: 20191005
  Serious: Yes (Death)
  Sender: FDA-Public Use
  Company Number: PHEH2019US037817

PATIENT
  Age: 77 Year
  Weight: 134 kg

DRUGS (1)
  1. ENTRESTO [Suspect]
     Active Substance: SACUBITRIL\VALSARTAN
     Indication: CARDIAC FAILURE CHRONIC
     Dosage: 1 DF, (SACUBITRIL 49 MG/VALSARTAN 51 MG), BID
     Route: 065

REACTIONS (1)
  - Fall [Fatal]

NARRATIVE: CASE EVENT DATE: 20190203
